FAERS Safety Report 4277867-3 (Version None)
Quarter: 2004Q1

REPORT INFORMATION
  Report Type: 
  Country: None (occurrence: None)
  Receive Date: 20040121
  Receipt Date: 20030206
  Transmission Date: 20041129
  Serious: Yes (Hospitalization)
  Sender: FDA-Public Use
  Company Number: 2003-01-0301

PATIENT
  Age: 37 Year
  Sex: Male

DRUGS (3)
  1. SUBUTEX [Suspect]
     Indication: DRUG DEPENDENCE
     Dosage: INTRAVENOUS
     Route: 042
  2. DIANTALVIC [Concomitant]
  3. MACROGOL [Concomitant]

REACTIONS (2)
  - CONSTIPATION [None]
  - LYMPHADENOPATHY [None]
